FAERS Safety Report 23438345 (Version 1)
Quarter: 2024Q1

REPORT INFORMATION
  Report Type: Spontaneous
  Country: CA (occurrence: CA)
  Receive Date: 20240124
  Receipt Date: 20240124
  Transmission Date: 20240409
  Serious: Yes (Other)
  Sender: FDA-Public Use
  Company Number: CA-FreseniusKabi-FK202401203

PATIENT
  Age: 42 Year
  Sex: Female

DRUGS (2)
  1. MORPHINE [Suspect]
     Active Substance: MORPHINE
     Indication: Pain
     Dosage: FREQUENCY: AS REQUIRED?DOSAGE FORM: NOT SPECIFIED
     Route: 042
  2. EPINEPHRINE [Concomitant]
     Active Substance: EPINEPHRINE
     Indication: Product used for unknown indication
     Dosage: FORM: SOLUTION INTRAMUSCULAR

REACTIONS (5)
  - Dyspnoea [Recovering/Resolving]
  - Pharyngeal swelling [Recovering/Resolving]
  - Pruritus [Recovering/Resolving]
  - Throat irritation [Recovering/Resolving]
  - Wheezing [Recovering/Resolving]
